FAERS Safety Report 24379624 (Version 1)
Quarter: 2024Q3

REPORT INFORMATION
  Report Type: Spontaneous
  Country: CZ (occurrence: CZ)
  Receive Date: 20240930
  Receipt Date: 20240930
  Transmission Date: 20241016
  Serious: Yes (Other)
  Sender: GLAXOSMITHKLINE
  Company Number: CZ-GLAXOSMITHKLINE-CZ2024EME118146

PATIENT

DRUGS (1)
  1. NUCALA [Suspect]
     Active Substance: MEPOLIZUMAB
     Indication: Chronic rhinosinusitis with nasal polyps
     Dosage: 100 MG, Q4W
     Dates: start: 20240409, end: 20240923

REACTIONS (3)
  - Urinary retention [Unknown]
  - Dysuria [Unknown]
  - Nocturia [Unknown]

NARRATIVE: CASE EVENT DATE: 20240409
